FAERS Safety Report 17584701 (Version 3)
Quarter: 2020Q2

REPORT INFORMATION
  Report Type: Report from Study
  Country: None (occurrence: US)
  Receive Date: 20200326
  Receipt Date: 20200605
  Transmission Date: 20200713
  Serious: Yes (Hospitalization)
  Sender: FDA-Public Use
  Company Number: US-ABBVIE-20P-163-3330703-00

PATIENT
  Age: 49 Year
  Sex: Male
  Weight: 91 kg

DRUGS (4)
  1. LENALIDOMIDE [Concomitant]
     Active Substance: LENALIDOMIDE
     Indication: MANTLE CELL LYMPHOMA
     Route: 048
     Dates: start: 20191223
  2. LEVAQUIN [Concomitant]
     Active Substance: LEVOFLOXACIN
     Indication: SPLENIC ABSCESS
     Route: 048
     Dates: start: 20200316
  3. RITUXIMAB. [Concomitant]
     Active Substance: RITUXIMAB
     Indication: MANTLE CELL LYMPHOMA
     Route: 042
     Dates: start: 20191223
  4. VENETOCLAX. [Suspect]
     Active Substance: VENETOCLAX
     Indication: MANTLE CELL LYMPHOMA
     Route: 048
     Dates: start: 20200102

REACTIONS (2)
  - Splenic infection [Recovered/Resolved]
  - Splenic infection [Recovered/Resolved]

NARRATIVE: CASE EVENT DATE: 20200319
